FAERS Safety Report 16584297 (Version 1)
Quarter: 2019Q3

REPORT INFORMATION
  Report Type: Spontaneous
  Country: US (occurrence: US)
  Receive Date: 20190716
  Receipt Date: 20190716
  Transmission Date: 20191004
  Serious: No
  Sender: FDA-Public Use
  Company Number: None

PATIENT
  Age: 39 Year
  Sex: Female

DRUGS (2)
  1. IBRANCE [Suspect]
     Active Substance: PALBOCICLIB
     Dates: start: 20190625
  2. IBRANCE [Concomitant]
     Active Substance: PALBOCICLIB
     Dates: start: 20190625

REACTIONS (4)
  - Skin exfoliation [None]
  - Pain in extremity [None]
  - Rash [None]
  - Skin burning sensation [None]
